FAERS Safety Report 21936343 (Version 1)
Quarter: 2023Q1

REPORT INFORMATION
  Report Type: Spontaneous
  Country: US (occurrence: None)
  Receive Date: 20230131
  Receipt Date: 20230131
  Transmission Date: 20230417
  Serious: No
  Sender: FDA-Public Use
  Company Number: None

PATIENT
  Sex: Male
  Weight: 68.04 kg

DRUGS (8)
  1. TEMOZOLOMIDE [Suspect]
     Active Substance: TEMOZOLOMIDE
     Indication: Brain neoplasm malignant
     Dosage: 250MG DAYS 1-5 ORAL- 28 DAY CYCLE?
     Route: 048
  2. TEMOZOLOMIDE [Suspect]
     Active Substance: TEMOZOLOMIDE
     Indication: Brain neoplasm malignant
     Dosage: 360MG DAYS 1-5 ORAL- 28 DAY CYCLE?
     Route: 048
  3. ACETAMINOPHEN [Concomitant]
     Active Substance: ACETAMINOPHEN
  4. DORZOLAMIDE [Concomitant]
     Active Substance: DORZOLAMIDE
  5. KEPPRA [Concomitant]
     Active Substance: LEVETIRACETAM
  6. MELATONIN [Concomitant]
     Active Substance: MELATONIN
  7. SEROQUEL [Concomitant]
     Active Substance: QUETIAPINE FUMARATE
  8. TIMOLOL [Concomitant]
     Active Substance: TIMOLOL

REACTIONS (3)
  - Full blood count decreased [None]
  - Therapy interrupted [None]
  - Pain [None]
